FAERS Safety Report 23139017 (Version 3)
Quarter: 2025Q1

REPORT INFORMATION
  Report Type: Spontaneous
  Country: US (occurrence: US)
  Receive Date: 20231102
  Receipt Date: 20250130
  Transmission Date: 20250409
  Serious: Yes (Other)
  Sender: PFIZER
  Company Number: US-PFIZER INC-PV202300178303

PATIENT
  Age: 56 Year
  Sex: Female

DRUGS (6)
  1. IBRANCE [Suspect]
     Active Substance: PALBOCICLIB
     Indication: Breast cancer female
     Dates: start: 202208
  2. IBRANCE [Suspect]
     Active Substance: PALBOCICLIB
     Route: 048
     Dates: start: 20231027
  3. PLAQUENIL [Suspect]
     Active Substance: HYDROXYCHLOROQUINE SULFATE
  4. LETROZOLE [Concomitant]
     Active Substance: LETROZOLE
     Dates: start: 202208
  5. NURTEC ODT [Concomitant]
     Active Substance: RIMEGEPANT SULFATE
  6. ZOLEDRONIC [Concomitant]
     Active Substance: ZOLEDRONIC ACID

REACTIONS (5)
  - Cytopenia [Unknown]
  - Leukopenia [Unknown]
  - Fatigue [Unknown]
  - Monocytopenia [Unknown]
  - Anaemia [Unknown]
